FAERS Safety Report 4941381-X (Version None)
Quarter: 2006Q1

REPORT INFORMATION
  Report Type: 
  Country: None (occurrence: None)
  Receive Date: 20060313
  Receipt Date: 20060207
  Transmission Date: 20060701
  Serious: Yes (Hospitalization)
  Sender: FDA-Public Use
  Company Number: US-MERCK-0602USA01793

PATIENT
  Age: 93 Year
  Sex: Female
  Weight: 54 kg

DRUGS (2)
  1. VIOXX [Suspect]
     Indication: ARTHRITIS
     Route: 048
     Dates: start: 20000710, end: 20010929
  2. VIOXX [Suspect]
     Indication: ARTHRALGIA
     Route: 048
     Dates: start: 20000710, end: 20010929

REACTIONS (20)
  - ANAEMIA [None]
  - BLADDER NEOPLASM [None]
  - BRONCHITIS [None]
  - CARDIAC FAILURE CONGESTIVE [None]
  - DEMENTIA [None]
  - EATING DISORDER [None]
  - HAEMATURIA [None]
  - HAEMORRHAGE [None]
  - HYPERTENSION [None]
  - HYPOGLYCAEMIA [None]
  - HYPOTENSION [None]
  - MENTAL STATUS CHANGES [None]
  - NUTRITIONAL SUPPORT [None]
  - ORAL INTAKE REDUCED [None]
  - PELVIC FRACTURE [None]
  - PNEUMONIA [None]
  - PNEUMONIA ASPIRATION [None]
  - PYREXIA [None]
  - SWELLING [None]
  - WRONG DRUG ADMINISTERED [None]
